FAERS Safety Report 9446701 (Version 2)
Quarter: 2013Q3

REPORT INFORMATION
  Report Type: Spontaneous
  Country: US (occurrence: US)
  Receive Date: 20130807
  Receipt Date: 20130904
  Transmission Date: 20140515
  Serious: No
  Sender: FDA-Public Use
  Company Number: US-AMGEN-USASP2013052126

PATIENT
  Age: 61 Year
  Sex: Female

DRUGS (8)
  1. ENBREL [Suspect]
     Indication: ANKYLOSING SPONDYLITIS
     Dosage: 50 MG, QWK
     Route: 065
     Dates: start: 20130530
  2. CARISOPRODOL [Concomitant]
     Dosage: 350 MG, TID
     Route: 048
  3. CELEBREX [Concomitant]
     Dosage: 200 MG, BID
     Route: 048
     Dates: start: 20130530
  4. CYMBALTA [Concomitant]
     Dosage: 20 MG, QD
     Route: 048
  5. FENTANYL [Concomitant]
     Dosage: 150 MG, Q72H
     Route: 062
     Dates: start: 20130530
  6. NEXIUM                             /01479302/ [Concomitant]
     Dosage: 40 MG, QAM
     Route: 048
  7. SOMA [Concomitant]
     Dosage: UNK
     Dates: start: 20130530
  8. NORCO [Concomitant]
     Dosage: UNK
     Dates: start: 20130530

REACTIONS (9)
  - Chest discomfort [Not Recovered/Not Resolved]
  - Painful respiration [Not Recovered/Not Resolved]
  - Abdominal pain upper [Not Recovered/Not Resolved]
  - Oropharyngeal pain [Not Recovered/Not Resolved]
  - Injection site pruritus [Not Recovered/Not Resolved]
  - Injection site pain [Not Recovered/Not Resolved]
  - Injection site erythema [Not Recovered/Not Resolved]
  - Chest pain [Not Recovered/Not Resolved]
  - Injection site reaction [Unknown]
